FAERS Safety Report 16890727 (Version 1)
Quarter: 2019Q4

REPORT INFORMATION
  Report Type: Spontaneous
  Country: US (occurrence: US)
  Receive Date: 20191005
  Receipt Date: 20191005
  Transmission Date: 20200122
  Serious: No
  Sender: FDA-Public Use
  Company Number: None

PATIENT
  Age: 77 Year
  Sex: Male
  Weight: 66.6 kg

DRUGS (9)
  1. PROBENECID. [Concomitant]
     Active Substance: PROBENECID
  2. VITAMIN D3 [Concomitant]
     Active Substance: CHOLECALCIFEROL
  3. ACYCLOVIR. [Concomitant]
     Active Substance: ACYCLOVIR
  4. MAGNESIUM [Concomitant]
     Active Substance: MAGNESIUM
  5. FLOMAX [Concomitant]
     Active Substance: TAMSULOSIN HYDROCHLORIDE
  6. FINASTERIDE GENERIC FOR PROSCAR [Suspect]
     Active Substance: FINASTERIDE
     Indication: PROSTATOMEGALY
     Dosage: ?          QUANTITY:1 TABLET(S);?
     Route: 048
     Dates: start: 20190521, end: 20190926
  7. MULTI-VITAMIN [Concomitant]
     Active Substance: .ALPHA.-TOCOPHEROL ACETATE, DL-\ASCORBIC ACID\CYANOCOBALAMIN\FLUORIDE ION\FOLIC ACID\NIACIN\PYRIDOXINE\RIBOFLAVIN\THIAMINE\VITAMIN A\VITAMIN D
  8. VITAMIN C [Concomitant]
     Active Substance: ASCORBIC ACID
  9. FISH OIL [Concomitant]
     Active Substance: FISH OIL

REACTIONS (7)
  - Pruritus [None]
  - Rhinorrhoea [None]
  - Anxiety [None]
  - Dysphagia [None]
  - Speech disorder [None]
  - Dizziness [None]
  - Tongue disorder [None]

NARRATIVE: CASE EVENT DATE: 20190925
